FAERS Safety Report 21518825 (Version 5)
Quarter: 2022Q4

REPORT INFORMATION
  Report Type: Spontaneous
  Country: GB (occurrence: GB)
  Receive Date: 20221028
  Receipt Date: 20221216
  Transmission Date: 20230112
  Serious: Yes (Hospitalization, Other)
  Sender: FDA-Public Use
  Company Number: GB-BAXTER-2022BAX021446

PATIENT

DRUGS (38)
  1. MIDAZOLAM [Suspect]
     Active Substance: MIDAZOLAM
     Indication: Sedative therapy
     Dosage: UNK, (WITH FIRST DOSE OF STUDY DRUG) DOSE AND FREQUENCY NOT REPORTED)
     Route: 065
     Dates: start: 20220110, end: 20220110
  2. MIDAZOLAM [Suspect]
     Active Substance: MIDAZOLAM
     Indication: Product used for unknown indication
     Dosage: UNK, (WITH SECOND DOSE OF STUDY DRUG) DOSE AND FREQUENCY NOT REPORTED
     Route: 065
     Dates: start: 20220207, end: 20220207
  3. MIDAZOLAM [Suspect]
     Active Substance: MIDAZOLAM
     Dosage: UNK, (WITH THIRD DOSE OF STUDY DRUG) DOSE AND FREQUENCY NOT REPORTED)
     Route: 065
     Dates: start: 20220307, end: 20220307
  4. MIDAZOLAM [Suspect]
     Active Substance: MIDAZOLAM
     Dosage: UNK, (WITH FOURTH DOSE OF STUDY DRUG) DOSE AND FREQUENCY NOT REPORTED)
     Route: 065
     Dates: start: 20220404, end: 20220404
  5. MIDAZOLAM [Suspect]
     Active Substance: MIDAZOLAM
     Dosage: UNK, (WITH FIFTH DOSE OF STUDY DRUG) DOSE AND FREQUENCY NOT REPORTED
     Route: 065
     Dates: start: 20220627, end: 20220627
  6. MIDAZOLAM [Suspect]
     Active Substance: MIDAZOLAM
     Dosage: UNK, (WITH SIXTH DOSE OF STUDY DRUG) DOSE AND FREQUENCY NOT REPORTED)
     Route: 065
     Dates: start: 20220926, end: 20220926
  7. ACETAMINOPHEN [Suspect]
     Active Substance: ACETAMINOPHEN
     Indication: Constipation
     Dosage: UNK
     Route: 065
     Dates: start: 20220120
  8. ACETAMINOPHEN [Suspect]
     Active Substance: ACETAMINOPHEN
     Indication: Pain
  9. ZONISAMIDE [Suspect]
     Active Substance: ZONISAMIDE
     Indication: Epilepsy
     Dosage: UNK
     Route: 065
     Dates: start: 20220524
  10. ZONISAMIDE [Suspect]
     Active Substance: ZONISAMIDE
     Dosage: UNK
     Route: 065
     Dates: start: 20220903
  11. ALFENTANIL [Suspect]
     Active Substance: ALFENTANIL
     Indication: Product used for unknown indication
     Dosage: FIRST DOSE
     Route: 065
     Dates: start: 20220110, end: 20220110
  12. ALFENTANIL [Suspect]
     Active Substance: ALFENTANIL
     Indication: Sedative therapy
     Dosage: SECOND DOSE
     Route: 065
     Dates: start: 20220207, end: 20220207
  13. ALFENTANIL [Suspect]
     Active Substance: ALFENTANIL
     Dosage: THIRD DOSE
     Route: 065
     Dates: start: 20220307, end: 20220307
  14. ALFENTANIL [Suspect]
     Active Substance: ALFENTANIL
     Dosage: FOURTH DOSE
     Route: 065
     Dates: start: 20220404, end: 20220404
  15. ALFENTANIL [Suspect]
     Active Substance: ALFENTANIL
     Dosage: FIFTH DOSE
     Route: 065
     Dates: start: 20220627, end: 20220627
  16. ALFENTANIL [Suspect]
     Active Substance: ALFENTANIL
     Dosage: SIXTH DOSE
     Route: 065
     Dates: start: 20220926, end: 20220926
  17. CLOBAZAM [Suspect]
     Active Substance: CLOBAZAM
     Indication: Epilepsy
     Dosage: UNK
     Route: 065
     Dates: start: 201910
  18. CLONIDINE [Suspect]
     Active Substance: CLONIDINE
     Indication: Sleep disorder
     Dosage: UNK
     Route: 065
     Dates: start: 20210101
  19. MELATONIN [Suspect]
     Active Substance: MELATONIN
     Indication: Sleep disorder
     Dosage: UNK
     Route: 065
     Dates: start: 202008
  20. NITROUS OXIDE [Suspect]
     Active Substance: NITROUS OXIDE
     Indication: Sedative therapy
     Dosage: UNK
     Route: 065
     Dates: start: 20220110
  21. PROPOFOL [Suspect]
     Active Substance: PROPOFOL
     Indication: Product used for unknown indication
     Dosage: FIRST DOSE
     Route: 065
     Dates: start: 20220110, end: 20220110
  22. PROPOFOL [Suspect]
     Active Substance: PROPOFOL
     Indication: Sedative therapy
     Dosage: SECOND DOSE
     Route: 065
     Dates: start: 20220207, end: 20220207
  23. PROPOFOL [Suspect]
     Active Substance: PROPOFOL
     Dosage: THIRD DOSE
     Route: 065
     Dates: start: 20220307, end: 20220307
  24. PROPOFOL [Suspect]
     Active Substance: PROPOFOL
     Dosage: FOURTH DOSE
     Route: 065
     Dates: start: 20220404, end: 20220404
  25. PROPOFOL [Suspect]
     Active Substance: PROPOFOL
     Dosage: FIFTH DOSE
     Route: 065
     Dates: start: 20220627, end: 20220627
  26. PROPOFOL [Suspect]
     Active Substance: PROPOFOL
     Dosage: SIXTH DOSE
     Route: 065
     Dates: start: 20220926, end: 20220926
  27. SEVOFLURANE [Suspect]
     Active Substance: SEVOFLURANE
     Indication: Product used for unknown indication
     Dosage: UNK UNK %, FIRST DOSE
     Route: 055
     Dates: start: 20220110, end: 20220110
  28. SEVOFLURANE [Suspect]
     Active Substance: SEVOFLURANE
     Indication: Sedative therapy
     Dosage: UNK UNK, SINGLE, UNK %, SECOND DOSE
     Route: 055
     Dates: start: 20220207, end: 20220207
  29. SEVOFLURANE [Suspect]
     Active Substance: SEVOFLURANE
     Indication: Anaesthesia procedure
     Dosage: 2.6 %, SINGLE, THIRD DOSE
     Route: 055
     Dates: start: 20220307, end: 20220307
  30. SEVOFLURANE [Suspect]
     Active Substance: SEVOFLURANE
     Dosage: UNK UNK, SINGLE, UNK % FOURTH DOSE
     Route: 055
     Dates: start: 20220404, end: 20220404
  31. SEVOFLURANE [Suspect]
     Active Substance: SEVOFLURANE
     Dosage: UNK UNK, SINGLE UNK %, SINGLE, FIFTH DOSE
     Route: 055
     Dates: start: 20220627, end: 20220627
  32. SEVOFLURANE [Suspect]
     Active Substance: SEVOFLURANE
     Dosage: UNK UNK, SINGLE UNK %, SINGLE, SIXTH DOSE
     Route: 055
     Dates: start: 20220926, end: 20220926
  33. SEVOFLURANE [Suspect]
     Active Substance: SEVOFLURANE
     Indication: Sedative therapy
     Dosage: UNK (UNK %, FIRST DOSE)
     Route: 055
     Dates: start: 20220110, end: 20220110
  34. SEVOFLURANE [Suspect]
     Active Substance: SEVOFLURANE
     Indication: Anaesthesia procedure
     Dosage: UNK (UNK %, SINGLE, SECOND DOSE)
     Route: 055
     Dates: start: 20220207, end: 20220207
  35. SEVOFLURANE [Suspect]
     Active Substance: SEVOFLURANE
     Dosage: 2.6 % (SINGLE, THIRD DOSE)
     Route: 055
     Dates: start: 20220307, end: 20220307
  36. SEVOFLURANE [Suspect]
     Active Substance: SEVOFLURANE
     Dosage: UNK (UNK %, SINGLE, FOURTH DOSE)
     Route: 055
     Dates: start: 20220404, end: 20220404
  37. SEVOFLURANE [Suspect]
     Active Substance: SEVOFLURANE
     Dosage: UNK (UNK % SINGLE, FIFTH DOSE)
     Route: 055
     Dates: start: 20220627, end: 20220627
  38. SEVOFLURANE [Suspect]
     Active Substance: SEVOFLURANE
     Dosage: UNK (UNK % SINGLE, SIXTH DOSE)
     Route: 055
     Dates: start: 20220926, end: 20220926

REACTIONS (2)
  - Epilepsy with myoclonic-atonic seizures [Recovered/Resolved]
  - Change in seizure presentation [Recovered/Resolved]

NARRATIVE: CASE EVENT DATE: 20220926
